FAERS Safety Report 8450325-8 (Version None)
Quarter: 2012Q2

REPORT INFORMATION
  Report Type: 
  Country: None (occurrence: None)
  Receive Date: 20120620
  Receipt Date: 20120613
  Transmission Date: 20120825
  Serious: Yes (Other)
  Sender: FDA-Public Use
  Company Number: PHHY2012SA050990

PATIENT
  Age: 8 Month
  Sex: Male

DRUGS (2)
  1. SANDOSTATIN [Suspect]
     Indication: GASTROINTESTINAL HAEMORRHAGE
     Dosage: 2 PG/KG/H FOR 14 DAYS
  2. NUTRITION SUPPLEMENTS [Concomitant]
     Dosage: UNK UKN, UNK
     Route: 065

REACTIONS (4)
  - CHRONIC HEPATIC FAILURE [None]
  - COAGULOPATHY [None]
  - GASTROINTESTINAL HAEMORRHAGE [None]
  - TREATMENT FAILURE [None]
